FAERS Safety Report 8076838-9 (Version None)
Quarter: 2012Q1

REPORT INFORMATION
  Report Type: 
  Country: None (occurrence: None)
  Receive Date: 20120127
  Receipt Date: 20120124
  Transmission Date: 20120608
  Serious: Yes (Other)
  Sender: FDA-Public Use
  Company Number: US-MERCK-1012USA03428

PATIENT
  Age: 82 Year
  Sex: Female

DRUGS (1)
  1. FOSAMAX [Suspect]
     Route: 048
     Dates: start: 20040101, end: 20080101

REACTIONS (6)
  - FEMUR FRACTURE [None]
  - BONE DENSITY DECREASED [None]
  - FALL [None]
  - DIARRHOEA [None]
  - GAIT DISTURBANCE [None]
  - MACULAR DEGENERATION [None]
